FAERS Safety Report 6442244-3 (Version None)
Quarter: 2009Q4

REPORT INFORMATION
  Report Type: 
  Country: None (occurrence: None)
  Receive Date: 20091112
  Receipt Date: 20091102
  Transmission Date: 20100525
  Serious: Yes (Other)
  Sender: FDA-Public Use
  Company Number: A20090716-002

PATIENT
  Age: 77 Year
  Sex: Male

DRUGS (10)
  1. PITAVASTATIN CALCIUM [Suspect]
     Indication: DYSLIPIDAEMIA
     Dosage: 2MG, PO
     Route: 048
     Dates: start: 20090515, end: 20090810
  2. PROBUCOL [Suspect]
     Indication: DYSLIPIDAEMIA
     Dosage: 250MG, PO
     Route: 048
     Dates: start: 20090515, end: 20090810
  3. METFORMIN HCL [Concomitant]
  4. RANITIDINE HYDROCHLORIDE [Concomitant]
  5. TRIAZOLAM [Concomitant]
  6. BERAPROST SODIUM [Concomitant]
  7. TICLOPIDINE HYDROCHLORIDE [Concomitant]
  8. REBAMIPIDE [Concomitant]
  9. IMIDAPRIL HYDROCHLORIDE [Concomitant]
  10. ACETYLSALICYLIC ACID [Concomitant]

REACTIONS (10)
  - ALANINE AMINOTRANSFERASE INCREASED [None]
  - ASPARTATE AMINOTRANSFERASE INCREASED [None]
  - BLOOD LACTATE DEHYDROGENASE INCREASED [None]
  - CONSTIPATION [None]
  - GAMMA-GLUTAMYLTRANSFERASE INCREASED [None]
  - HEPATIC FUNCTION ABNORMAL [None]
  - MALAISE [None]
  - MUSCULAR WEAKNESS [None]
  - PYREXIA [None]
  - VOMITING [None]
